FAERS Safety Report 25989268 (Version 1)
Quarter: 2025Q4

REPORT INFORMATION
  Report Type: Spontaneous
  Country: US (occurrence: US)
  Receive Date: 20251103
  Receipt Date: 20251103
  Transmission Date: 20260117
  Serious: Yes (Life-Threatening, Hospitalization, Other)
  Sender: ASTELLAS
  Company Number: US-ASTELLAS-2025-AER-060706

PATIENT
  Age: 4 Year
  Sex: Male

DRUGS (3)
  1. TACROLIMUS [Interacting]
     Active Substance: TACROLIMUS
     Indication: Liver transplant
     Dosage: INITIATED ON POST-OPERATIVE DAY (POD) 1
     Route: 065
  2. TACROLIMUS [Interacting]
     Active Substance: TACROLIMUS
     Route: 065
  3. NICARDIPINE [Interacting]
     Active Substance: NICARDIPINE
     Indication: Hypertension
     Dosage: CONTINUOUS INTRAVENOUS ADDED ON POD 11
     Route: 042

REACTIONS (5)
  - Nephropathy toxic [Recovering/Resolving]
  - Anuria [Recovering/Resolving]
  - Hypervolaemia [Recovering/Resolving]
  - Respiratory failure [Recovering/Resolving]
  - Drug interaction [Unknown]
